FAERS Safety Report 6708632-2 (Version None)
Quarter: 2010Q2

REPORT INFORMATION
  Report Type: 
  Country: None (occurrence: None)
  Receive Date: 20100503
  Receipt Date: 20100421
  Transmission Date: 20101027
  Serious: Yes (Hospitalization, Disabling, Other)
  Sender: FDA-Public Use
  Company Number: US-ELI_LILLY_AND_COMPANY-US200603003378

PATIENT
  Sex: Male
  Weight: 74.83 kg

DRUGS (3)
  1. ZYPREXA [Suspect]
     Indication: ANXIETY
     Dosage: 1 D/F, UNK
     Route: 050
     Dates: start: 20000101
  2. CARBIDOPA-LEVODOPA [Concomitant]
     Dosage: 1 D/F, UNK
     Route: 050
  3. MELLARIL [Concomitant]
     Indication: AGITATION
     Dosage: 25 MG, UNK
     Route: 050

REACTIONS (6)
  - GANGRENE [None]
  - METABOLIC DISORDER [None]
  - OSTEOMYELITIS [None]
  - TYPE 2 DIABETES MELLITUS [None]
  - WEIGHT DECREASED [None]
  - WEIGHT INCREASED [None]
